FAERS Safety Report 17584029 (Version 1)
Quarter: 2020Q1

REPORT INFORMATION
  Report Type: Spontaneous
  Country: US (occurrence: US)
  Receive Date: 20200326
  Receipt Date: 20200326
  Transmission Date: 20200409
  Serious: Yes (Death)
  Sender: FDA-Public Use
  Company Number: US-ABBVIE-20K-163-3334264-00

PATIENT
  Sex: Female

DRUGS (4)
  1. VENETOCLAX. [Suspect]
     Active Substance: VENETOCLAX
     Dosage: DOSE INCREASE ON DAY 3
     Route: 048
  2. ISAVUCONAZOLE [Concomitant]
     Active Substance: ISAVUCONAZOLE
     Indication: ANTIFUNGAL PROPHYLAXIS
  3. VENETOCLAX. [Suspect]
     Active Substance: VENETOCLAX
     Indication: T-CELL TYPE ACUTE LEUKAEMIA
     Route: 048
  4. DECITABINE. [Suspect]
     Active Substance: DECITABINE
     Indication: T-CELL TYPE ACUTE LEUKAEMIA
     Dosage: ONCE DAILY FOR 5 DAYS EVERY 28 DAYS
     Route: 042

REACTIONS (2)
  - Pulmonary mycosis [Fatal]
  - Herpes simplex [Fatal]
